FAERS Safety Report 9361546 (Version 1)
Quarter: 2013Q2

REPORT INFORMATION
  Report Type: Report from Study
  Country: GB (occurrence: GB)
  Receive Date: 20130621
  Receipt Date: 20130621
  Transmission Date: 20140414
  Serious: Yes (Hospitalization)
  Sender: FDA-Public Use
  Company Number: GB-US-EMD SERONO, INC.-7218630

PATIENT
  Age: 38 Year
  Sex: Female

DRUGS (2)
  1. REBIF [Suspect]
     Indication: PRODUCT USED FOR UNKNOWN INDICATION
     Route: 058
     Dates: end: 201110
  2. REBIF [Suspect]
     Route: 058

REACTIONS (4)
  - Fall [Unknown]
  - Brachial plexus injury [Unknown]
  - Joint dislocation [Unknown]
  - Influenza like illness [Unknown]
